FAERS Safety Report 6534958-1 (Version None)
Quarter: 2010Q1

REPORT INFORMATION
  Report Type: 
  Country: None (occurrence: None)
  Receive Date: 20100111
  Receipt Date: 20100111
  Transmission Date: 20100710
  Serious: Yes (Hospitalization)
  Sender: FDA-Public Use
  Company Number: None

PATIENT
  Age: 38 Year
  Sex: Male

DRUGS (2)
  1. PROPOFOL [Suspect]
     Indication: SURGERY
     Dates: start: 20090729, end: 20090729
  2. VECURONIUM BROMIDE [Suspect]
     Indication: SURGERY
     Dates: start: 20090729, end: 20090729

REACTIONS (4)
  - ACIDOSIS [None]
  - ANAPHYLACTIC REACTION [None]
  - ELECTROCARDIOGRAM ST SEGMENT DEPRESSION [None]
  - HYPOKALAEMIA [None]
